FAERS Safety Report 6547208-7 (Version None)
Quarter: 2010Q1

REPORT INFORMATION
  Report Type: 
  Country: None (occurrence: None)
  Receive Date: 20100122
  Receipt Date: 20100119
  Transmission Date: 20100710
  Serious: Yes (Hospitalization)
  Sender: FDA-Public Use
  Company Number: US-ELI_LILLY_AND_COMPANY-US201001003701

PATIENT
  Age: 59 Year
  Sex: Female
  Weight: 89.9 kg

DRUGS (2)
  1. BYETTA [Suspect]
     Indication: TYPE 2 DIABETES MELLITUS
     Dosage: 10 UG, 2/D
     Route: 058
     Dates: end: 20100118
  2. BYETTA [Suspect]
     Dosage: 15 UG, 2/D
     Route: 058
     Dates: start: 20100118

REACTIONS (2)
  - KNEE ARTHROPLASTY [None]
  - OVERDOSE [None]
